FAERS Safety Report 12401761 (Version 2)
Quarter: 2016Q2

REPORT INFORMATION
  Report Type: Spontaneous
  Country: US (occurrence: US)
  Receive Date: 20160525
  Receipt Date: 20160527
  Transmission Date: 20160815
  Serious: No
  Sender: FDA-Public Use
  Company Number: US-SA-2015SA183730

PATIENT
  Age: 60 Year
  Sex: Female

DRUGS (2)
  1. LANTUS SOLOSTAR [Suspect]
     Active Substance: INSULIN GLARGINE
     Indication: DIABETES MELLITUS
     Dosage: DOSE:50 UNIT(S)
     Route: 065
     Dates: start: 2014
  2. SOLOSTAR [Suspect]
     Active Substance: DEVICE
     Indication: DIABETES MELLITUS
     Dates: start: 2014

REACTIONS (3)
  - Wrong technique in product usage process [Unknown]
  - Panic reaction [Unknown]
  - Drug administration error [Unknown]

NARRATIVE: CASE EVENT DATE: 2014
